FAERS Safety Report 9032319 (Version 2)
Quarter: 2013Q1

REPORT INFORMATION
  Report Type: Spontaneous
  Country: US (occurrence: US)
  Receive Date: 20130122
  Receipt Date: 20130301
  Transmission Date: 20140127
  Serious: No
  Sender: FDA-Public Use
  Company Number: US-PFIZER INC-2013020930

PATIENT
  Sex: Male

DRUGS (3)
  1. LYRICA [Suspect]
     Indication: FIBROMYALGIA
     Dosage: 75 MG, 1X/DAY (AT BEDTIME)
  2. LYRICA [Suspect]
     Dosage: 75 MG, 2X/DAY (TWICE/DAY)
  3. GLIMEPIRIDE [Concomitant]
     Indication: DIABETES MELLITUS
     Dosage: UNK

REACTIONS (2)
  - Blood glucose increased [Unknown]
  - Drug effect decreased [Unknown]
